FAERS Safety Report 4697305-6 (Version None)
Quarter: 2005Q2

REPORT INFORMATION
  Report Type: 
  Country: None (occurrence: None)
  Receive Date: 20050621
  Receipt Date: 20050621
  Transmission Date: 20051028
  Serious: Yes (Hospitalization)
  Sender: FDA-Public Use
  Company Number: None

PATIENT
  Age: 41 Year
  Sex: Male
  Weight: 105.2 kg

DRUGS (6)
  1. CIPRO [Suspect]
     Indication: CATHETER SITE INFECTION
     Dosage: 500 MG   BID  ORAL
     Route: 048
     Dates: start: 20050525, end: 20050604
  2. ATACAND [Concomitant]
  3. ATENOLOL [Concomitant]
  4. NEPHRO-VITE [Concomitant]
  5. PEPCID [Concomitant]
  6. CLARITIN [Concomitant]

REACTIONS (2)
  - CLOSTRIDIUM DIFFICILE TOXIN TEST POSITIVE [None]
  - CULTURE STOOL POSITIVE [None]
